FAERS Safety Report 8578039-4 (Version None)
Quarter: 2012Q3

REPORT INFORMATION
  Report Type: 
  Country: None (occurrence: None)
  Receive Date: 20120808
  Receipt Date: 20120801
  Transmission Date: 20120928
  Serious: Yes (Other)
  Sender: FDA-Public Use
  Company Number: PHHY2012IT067834

PATIENT
  Sex: Male

DRUGS (1)
  1. NEORAL [Suspect]
     Dosage: 300 MG, PER DAY
     Dates: start: 20111206, end: 20120312

REACTIONS (2)
  - RENAL IMPAIRMENT [None]
  - NEPHROLITHIASIS [None]
